FAERS Safety Report 9150222 (Version 2)
Quarter: 2013Q2

REPORT INFORMATION
  Report Type: Spontaneous
  Country: US (occurrence: US)
  Receive Date: 20130308
  Receipt Date: 20130404
  Transmission Date: 20140414
  Serious: No
  Sender: FDA-Public Use
  Company Number: US-B.I. PHARMACEUTICALS,INC./RIDGEFIELD-2013-BI-05796BP

PATIENT
  Age: 88 Year
  Sex: Male

DRUGS (13)
  1. COMBIVENT [Suspect]
     Indication: CHRONIC OBSTRUCTIVE PULMONARY DISEASE
     Route: 055
  2. METOPROLOL ER [Concomitant]
     Dosage: 50 MG
     Route: 048
  3. AMLODIPINE [Concomitant]
     Dosage: 2.5 MG
     Route: 048
  4. DIGOXIN [Concomitant]
     Dosage: 125 MCG
     Route: 048
  5. CLONAZEPAM [Concomitant]
     Route: 048
  6. LASIX [Concomitant]
     Dosage: 20 MG
     Route: 048
  7. BALSALAZIDE [Concomitant]
     Route: 048
  8. FLONASE [Concomitant]
     Route: 045
  9. CELEBREX [Concomitant]
     Route: 048
  10. FLOVENT [Concomitant]
     Route: 055
  11. LEVOTHYROXINE [Concomitant]
     Dosage: 125 MCG
     Route: 048
  12. ASPIRIN [Concomitant]
     Dosage: 325 MG
     Route: 048
  13. ZANTAC ACID REDUCER TABLETS [Concomitant]
     Indication: DYSPEPSIA
     Dosage: 150 MG
     Route: 048

REACTIONS (2)
  - Dyspnoea [Recovered/Resolved]
  - Therapeutic response delayed [Recovered/Resolved]
